FAERS Safety Report 7675111-8 (Version None)
Quarter: 2011Q3

REPORT INFORMATION
  Report Type: 
  Country: None (occurrence: None)
  Receive Date: 20110810
  Receipt Date: 20110727
  Transmission Date: 20111222
  Serious: Yes (Hospitalization)
  Sender: FDA-Public Use
  Company Number: US-ELI_LILLY_AND_COMPANY-US201103001610

PATIENT
  Sex: Female

DRUGS (19)
  1. NABUMETONE [Concomitant]
     Dosage: 500 MG, UNK
  2. ALBUTEROL SULFATE AUTOHALER [Concomitant]
     Dosage: 90 UG, UNK
  3. CALCIUM CARBONATE [Concomitant]
     Dosage: 750 MG, UNK
  4. LOVENOX [Concomitant]
  5. PRILOSEC [Concomitant]
     Dosage: 20 MG, UNK
  6. PREVACID [Concomitant]
  7. ADVAIR DISKUS 100/50 [Concomitant]
  8. FORTEO [Suspect]
     Indication: OSTEOPOROSIS
     Dosage: 20 UG, DAILY (1/D)
     Dates: start: 20101101
  9. DOCUSATE SODIUM [Concomitant]
  10. FENTANYL [Concomitant]
  11. VICODIN ES [Concomitant]
  12. FORTEO [Suspect]
     Dosage: 20 UG, QD
  13. IBUPROFEN [Concomitant]
     Dosage: 600 MG, UNK
  14. AUGMENTIN '125' [Concomitant]
  15. VITAMIN D [Concomitant]
  16. BUMEX [Concomitant]
     Dosage: 1 MG, UNK
  17. CELEXA [Concomitant]
     Dosage: 40 MG, UNK
  18. VITRON C [Concomitant]
  19. CALCIUM CARBONATE [Concomitant]

REACTIONS (7)
  - HIP FRACTURE [None]
  - INFLUENZA LIKE ILLNESS [None]
  - MUSCLE DISORDER [None]
  - INFECTION [None]
  - SCIATICA [None]
  - PAIN IN EXTREMITY [None]
  - LUMBAR SPINAL STENOSIS [None]
